FAERS Safety Report 7463928-4 (Version None)
Quarter: 2011Q2

REPORT INFORMATION
  Report Type: 
  Country: None (occurrence: None)
  Receive Date: 20110506
  Receipt Date: 20100422
  Transmission Date: 20111010
  Serious: Yes (Death)
  Sender: FDA-Public Use
  Company Number: GB-BAXTER-2010BH010879

PATIENT
  Age: 53 Year
  Sex: Female

DRUGS (4)
  1. CLOPIDOGREL [Concomitant]
     Indication: PRODUCT USED FOR UNKNOWN INDICATION
     Route: 065
  2. ASPIRIN [Concomitant]
     Indication: PRODUCT USED FOR UNKNOWN INDICATION
     Route: 065
  3. REFLUDAN [Suspect]
     Indication: PRODUCT USED FOR UNKNOWN INDICATION
     Route: 065
  4. HEPARIN [Suspect]
     Indication: COAGULOPATHY
     Route: 065

REACTIONS (5)
  - SUBARACHNOID HAEMORRHAGE [None]
  - SUBDURAL HAEMORRHAGE [None]
  - CEREBRAL HAEMORRHAGE [None]
  - CORONARY ARTERY THROMBOSIS [None]
  - HEPARIN-INDUCED THROMBOCYTOPENIA [None]
